FAERS Safety Report 6213292-3 (Version None)
Quarter: 2009Q2

REPORT INFORMATION
  Report Type: 
  Country: None (occurrence: None)
  Receive Date: 20090602
  Receipt Date: 20090602
  Transmission Date: 20091009
  Serious: Yes (Life-Threatening, Hospitalization, Disabling, Congenital Anomaly)
  Sender: FDA-Public Use
  Company Number: None

PATIENT
  Sex: Female
  Weight: 1.475 kg

DRUGS (9)
  1. RAMIPRIL [Suspect]
     Dosage: MOTHER TOOK TRIATEC FROM WEEKS 11-27 OF GESTATION
  2. POTASSIUM CHLORIDE [Concomitant]
  3. SPIRONOLACTONE [Concomitant]
  4. DALTEPARIN SODIUM [Concomitant]
  5. DIGOXIN [Concomitant]
  6. PANTOPRAZOLE SODIUM [Concomitant]
  7. FUROSEMIDE [Concomitant]
  8. METOPROLOL SUCCINATE [Concomitant]
  9. CANDESARTAN [Concomitant]

REACTIONS (13)
  - CAESAREAN SECTION [None]
  - CONGENITAL HYDROCEPHALUS [None]
  - CONGENITAL NYSTAGMUS [None]
  - INTRAVENTRICULAR HAEMORRHAGE NEONATAL [None]
  - MATERNAL DRUGS AFFECTING FOETUS [None]
  - NEONATAL ANURIA [None]
  - NEONATAL HYPOTENSION [None]
  - OPTIC ATROPHY [None]
  - PERITONEAL DIALYSIS [None]
  - PNEUMOTHORAX [None]
  - PREMATURE BABY [None]
  - RETINOPATHY OF PREMATURITY [None]
  - SMALL FOR DATES BABY [None]
